FAERS Safety Report 4779636-4 (Version None)
Quarter: 2005Q3

REPORT INFORMATION
  Report Type: 
  Country: None (occurrence: None)
  Receive Date: 20050914
  Receipt Date: 20050317
  Transmission Date: 20060218
  Serious: Yes (Hospitalization)
  Sender: FDA-Public Use
  Company Number: 163-20785-05020340

PATIENT
  Age: 71 Year
  Sex: Male
  Weight: 75 kg

DRUGS (6)
  1. THALOMID [Suspect]
     Indication: NON-SMALL CELL LUNG CANCER
     Dosage: 200 MG, QD, ORAL;  300 MG, QD, ORAL
     Route: 048
     Dates: start: 20050207, end: 20050209
  2. THALOMID [Suspect]
     Indication: NON-SMALL CELL LUNG CANCER
     Dosage: 200 MG, QD, ORAL;  300 MG, QD, ORAL
     Route: 048
     Dates: start: 20050307, end: 20050309
  3. PACLITAXEL [Suspect]
     Indication: NON-SMALL CELL LUNG CANCER
     Dosage: 405 MG, OVER 3 HRS, INTRAVENOUS
     Route: 042
     Dates: start: 20050207, end: 20050207
  4. PACLITAXEL [Suspect]
     Indication: NON-SMALL CELL LUNG CANCER
     Dosage: 405 MG, OVER 3 HRS, INTRAVENOUS
     Route: 042
     Dates: start: 20050307, end: 20050307
  5. CARBOPLATIN [Suspect]
     Indication: NON-SMALL CELL LUNG CANCER
     Dosage: 509 MG, OVER 30MIN., INTRAVENOUS; 488 MG, OVER 30 MIN., INTRAVENOUS
     Route: 042
     Dates: start: 20050207, end: 20050207
  6. CARBOPLATIN [Suspect]
     Indication: NON-SMALL CELL LUNG CANCER
     Dosage: 509 MG, OVER 30MIN., INTRAVENOUS; 488 MG, OVER 30 MIN., INTRAVENOUS
     Route: 042
     Dates: start: 20050307, end: 20050307

REACTIONS (6)
  - AORTIC THROMBOSIS [None]
  - ARTERIAL THROMBOSIS [None]
  - ARTERIAL THROMBOSIS LIMB [None]
  - CHRONIC OBSTRUCTIVE PULMONARY DISEASE [None]
  - DYSPNOEA [None]
  - PERIPHERAL ISCHAEMIA [None]
